FAERS Safety Report 24677440 (Version 3)
Quarter: 2025Q1

REPORT INFORMATION
  Report Type: Spontaneous
  Country: JP (occurrence: JP)
  Receive Date: 20241129
  Receipt Date: 20250222
  Transmission Date: 20250409
  Serious: Yes (Death, Other)
  Sender: TAKEDA
  Company Number: JP-SAKK-2024SA346802AA

PATIENT
  Age: 10 Year
  Sex: Male

DRUGS (1)
  1. ELAPRASE [Suspect]
     Active Substance: IDURSULFASE
     Indication: Mucopolysaccharidosis II

REACTIONS (2)
  - Dyspnoea [Fatal]
  - Disease progression [Fatal]

NARRATIVE: CASE EVENT DATE: 20241121
